FAERS Safety Report 5530361-1 (Version None)
Quarter: 2007Q4

REPORT INFORMATION
  Report Type: 
  Country: None (occurrence: None)
  Receive Date: 20071130
  Receipt Date: 20071119
  Transmission Date: 20080405
  Serious: Yes (Hospitalization)
  Sender: FDA-Public Use
  Company Number: CH-ROCHE-532597

PATIENT
  Age: 84 Year
  Sex: Male
  Weight: 90 kg

DRUGS (5)
  1. TOREM [Suspect]
     Indication: ESSENTIAL HYPERTENSION
     Route: 048
  2. CORDARONE [Suspect]
     Indication: VENTRICULAR FIBRILLATION
     Route: 048
     Dates: start: 20061201, end: 20071001
  3. ELIGARD [Suspect]
     Route: 058
     Dates: start: 20070301, end: 20070901
  4. BELOC-ZOK [Suspect]
     Dosage: BELOC.ZOK RETARD
     Route: 048
  5. LISINOPRIL [Concomitant]
     Dates: start: 20071001, end: 20071101

REACTIONS (4)
  - ABDOMINAL PAIN [None]
  - ASCITES [None]
  - CHOLESTASIS [None]
  - PROTHROMBIN TIME ABNORMAL [None]
